FAERS Safety Report 13674106 (Version 2)
Quarter: 2017Q3

REPORT INFORMATION
  Report Type: Spontaneous
  Country: US (occurrence: US)
  Receive Date: 20170621
  Receipt Date: 20170823
  Transmission Date: 20171127
  Serious: Yes (Other)
  Sender: FDA-Public Use
  Company Number: US-JNJFOC-20170608651

PATIENT
  Age: 43 Year
  Sex: Female
  Weight: 46.27 kg

DRUGS (1)
  1. FENTANYL TRANSDERMAL SYSTEM [Suspect]
     Active Substance: FENTANYL
     Indication: PAIN
     Route: 062

REACTIONS (8)
  - Drug ineffective [Unknown]
  - Product adhesion issue [Unknown]
  - Adverse event [Unknown]
  - Back pain [Unknown]
  - Hysterectomy [Unknown]
  - Hypersomnia [Unknown]
  - Weight decreased [Unknown]
  - Underdose [Unknown]

NARRATIVE: CASE EVENT DATE: 2006
